FAERS Safety Report 7381344-0 (Version None)
Quarter: 2011Q1

REPORT INFORMATION
  Report Type: 
  Country: None (occurrence: None)
  Receive Date: 20110321
  Receipt Date: 20110315
  Transmission Date: 20110831
  Serious: Yes (Life-Threatening)
  Sender: FDA-Public Use
  Company Number: 2011TJ0004

PATIENT
  Age: 63 Year
  Sex: Female

DRUGS (4)
  1. TWINJECT (EPINEPHRINE) INJECTION [Suspect]
     Indication: HYPERSENSITIVITY
     Dosage: 0.3 MG, AS NEEDED,
  2. UNSPECIFIED INHALER FOR CHRONIC ASTHMA [Concomitant]
  3. UNSPECIFIED INHALER FOR COPD [Concomitant]
  4. OXYGEN [Concomitant]

REACTIONS (2)
  - DEVICE BREAKAGE [None]
  - DEVICE MALFUNCTION [None]
